FAERS Safety Report 5063341-3 (Version None)
Quarter: 2006Q3

REPORT INFORMATION
  Report Type: 
  Country: None (occurrence: None)
  Receive Date: 20060703
  Receipt Date: 20060527
  Transmission Date: 20061208
  Serious: No
  Sender: FDA-Public Use
  Company Number: 2006PV014605

PATIENT
  Age: 24 Year
  Sex: Female
  Weight: 68.4932 kg

DRUGS (2)
  1. SYMLIN [Suspect]
     Indication: DIABETES MELLITUS INSULIN-DEPENDENT
     Dosage: SC
     Route: 058
     Dates: start: 20060401
  2. NOVALOG VIA PUMP [Concomitant]

REACTIONS (1)
  - DRY MOUTH [None]
